FAERS Safety Report 10141982 (Version 1)
Quarter: 2014Q2

REPORT INFORMATION
  Report Type: Spontaneous
  Country: US (occurrence: US)
  Receive Date: 20140429
  Receipt Date: 20140429
  Transmission Date: 20141212
  Serious: Yes (Hospitalization, Other)
  Sender: FDA-Public Use
  Company Number: US-PFIZER INC-2014117515

PATIENT
  Age: 73 Year
  Sex: Female

DRUGS (4)
  1. ENBREL [Suspect]
     Indication: PSORIATIC ARTHROPATHY
     Dosage: UNK UNK, QWK
     Dates: start: 200605, end: 2008
  2. CELEBREX [Suspect]
     Indication: ARTHRITIS
     Dosage: UNK
  3. REMICADE [Suspect]
     Dosage: UNK
  4. PREDNISONE [Concomitant]
     Dosage: UNK

REACTIONS (10)
  - Pericardial effusion [Recovered/Resolved]
  - Weight decreased [Not Recovered/Not Resolved]
  - Clostridium difficile infection [Recovered/Resolved]
  - Hypertension [Recovered/Resolved]
  - Fatigue [Not Recovered/Not Resolved]
  - Spinal disorder [Unknown]
  - Musculoskeletal stiffness [Not Recovered/Not Resolved]
  - Abdominal distension [Recovered/Resolved]
  - Asthenia [Not Recovered/Not Resolved]
  - Abdominal discomfort [Recovered/Resolved]
